FAERS Safety Report 19013869 (Version 1)
Quarter: 2021Q1

REPORT INFORMATION
  Report Type: Spontaneous
  Country: JP (occurrence: JP)
  Receive Date: 20210316
  Receipt Date: 20210316
  Transmission Date: 20210420
  Serious: Yes (Hospitalization)
  Sender: FDA-Public Use
  Company Number: JP-TEVA-202103_00011384

PATIENT
  Age: 59 Year
  Sex: Male

DRUGS (11)
  1. KCL [Concomitant]
     Active Substance: POTASSIUM CHLORIDE
     Route: 065
  2. CLINDAMYCIN INJECTION 600MG ^TAIYO^ [Suspect]
     Active Substance: CLINDAMYCIN HYDROCHLORIDE
     Indication: PNEUMONIA ASPIRATION
     Dosage: 1200 MILLIGRAM DAILY;
     Route: 041
     Dates: start: 20200206, end: 20200211
  3. CEFTRIAXONE SODIUM HYDRATE [Concomitant]
     Active Substance: CEFTRIAXONE SODIUM
     Route: 065
     Dates: start: 20200206, end: 20200209
  4. TAZOPIPE [Suspect]
     Active Substance: PIPERACILLIN SODIUM\TAZOBACTAM SODIUM
     Indication: PNEUMONIA ASPIRATION
     Dosage: 17 GRAM DAILY;
     Route: 041
     Dates: start: 20200201, end: 20200206
  5. LEVOFLOXACIN HEMIHYDRATE [Concomitant]
     Active Substance: LEVOFLOXACIN
     Route: 065
     Dates: start: 20200210, end: 20200211
  6. FENTANYL. [Concomitant]
     Active Substance: FENTANYL
     Route: 065
  7. AMLODIPINE [Concomitant]
     Active Substance: AMLODIPINE BESYLATE
     Route: 065
  8. BIO?THREE OD [Concomitant]
     Route: 065
  9. TAKECAB [Concomitant]
     Active Substance: VONOPRAZAN FUMARATE
     Route: 065
  10. PROPOFOL. [Concomitant]
     Active Substance: PROPOFOL
     Route: 065
  11. BFLUID [Concomitant]
     Active Substance: AMINO ACIDS\DEXTROSE\ELECTROLYTES NOS\VITAMINS
     Route: 065

REACTIONS (5)
  - Rash [Unknown]
  - Renal impairment [Unknown]
  - Hepatic function abnormal [Recovering/Resolving]
  - Pneumonia [Unknown]
  - Cardiac failure [Unknown]

NARRATIVE: CASE EVENT DATE: 20200207
